FAERS Safety Report 18675167 (Version 1)
Quarter: 2020Q4

REPORT INFORMATION
  Report Type: Spontaneous
  Country: US (occurrence: US)
  Receive Date: 20201228
  Receipt Date: 20201228
  Transmission Date: 20210114
  Serious: Yes (Death)
  Sender: FDA-Public Use
  Company Number: None

PATIENT
  Age: 42 Year
  Sex: Female

DRUGS (2)
  1. NEUPOGEN [Suspect]
     Active Substance: FILGRASTIM
     Indication: BLOOD DISORDER
     Dosage: ?          OTHER FREQUENCY:DAY 2-4 AFTER CHEM;?
     Route: 023
     Dates: start: 20200629
  2. NONE LISTED [Concomitant]

REACTIONS (1)
  - Death [None]
